FAERS Safety Report 4914272-8 (Version None)
Quarter: 2006Q1

REPORT INFORMATION
  Report Type: 
  Country: None (occurrence: None)
  Receive Date: 20060113
  Receipt Date: 20051107
  Transmission Date: 20060701
  Serious: No
  Sender: FDA-Public Use
  Company Number: 2005SP003876

PATIENT
  Age: 53 Year
  Sex: Female
  Weight: 92.9874 kg

DRUGS (4)
  1. LUNESTA [Suspect]
     Indication: FIBROMYALGIA
     Dosage: 2 MG; HS; ORAL
     Route: 048
     Dates: start: 20051103, end: 20051103
  2. LUNESTA [Suspect]
     Indication: INSOMNIA
     Dosage: 2 MG; HS; ORAL
     Route: 048
     Dates: start: 20051103, end: 20051103
  3. ATORVASTATIN CALCIUM [Concomitant]
  4. PANTOPRAZOLE [Concomitant]

REACTIONS (1)
  - PARADOXICAL DRUG REACTION [None]
